FAERS Safety Report 8576258-4 (Version None)
Quarter: 2012Q3

REPORT INFORMATION
  Report Type: 
  Country: None (occurrence: None)
  Receive Date: 20120807
  Receipt Date: 20120802
  Transmission Date: 20120928
  Serious: Yes (Other)
  Sender: FDA-Public Use
  Company Number: PHEH2012US015166

PATIENT
  Sex: Female

DRUGS (4)
  1. ACEBUTOLOL [Concomitant]
     Dosage: 200 MG, UNK
  2. ASPIRIN [Concomitant]
     Dosage: UNK UKN, UNK
  3. NEXIUM [Concomitant]
     Dosage: UNK UKN, UNK
  4. DIOVAN HCT [Suspect]
     Dosage: 1 DF (160/25 MG), QD

REACTIONS (1)
  - BLOOD PRESSURE INADEQUATELY CONTROLLED [None]
